FAERS Safety Report 12742126 (Version 8)
Quarter: 2017Q2

REPORT INFORMATION
  Report Type: Report from Study
  Country: US (occurrence: US)
  Receive Date: 20160914
  Receipt Date: 20170620
  Transmission Date: 20170830
  Serious: Yes (Hospitalization, Other)
  Sender: FDA-Public Use
  Company Number: US-GILEAD-2016-0233403

PATIENT
  Age: 69 Year
  Sex: Female

DRUGS (4)
  1. VELETRI [Suspect]
     Active Substance: EPOPROSTENOL
     Indication: PRODUCT USED FOR UNKNOWN INDICATION
     Route: 065
  2. AMBRISENTAN [Suspect]
     Active Substance: AMBRISENTAN
     Indication: PRODUCT USED FOR UNKNOWN INDICATION
     Dosage: 10 MG, QD
     Route: 065
     Dates: start: 20120618
  3. ADCIRCA [Concomitant]
     Active Substance: TADALAFIL
  4. IRON SUPPLEMENT WITH VIT C + HERBS [Concomitant]

REACTIONS (8)
  - Syncope [Unknown]
  - Transfusion [Unknown]
  - Diarrhoea [Unknown]
  - Incorrect dose administered by device [Unknown]
  - Transfusion [Unknown]
  - Pulmonary arterial hypertension [Not Recovered/Not Resolved]
  - Dyspnoea exertional [Unknown]
  - Dyspnoea [Not Recovered/Not Resolved]

NARRATIVE: CASE EVENT DATE: 20160826
